FAERS Safety Report 6723272-7 (Version None)
Quarter: 2010Q2

REPORT INFORMATION
  Report Type: 
  Country: None (occurrence: None)
  Receive Date: 20100512
  Receipt Date: 20100512
  Transmission Date: 20101027
  Serious: Yes (Other)
  Sender: FDA-Public Use
  Company Number: None

PATIENT
  Sex: Female
  Weight: 113.3993 kg

DRUGS (2)
  1. VALPROIC ACID [Suspect]
     Indication: BIPOLAR II DISORDER
     Dosage: 500 MG TWICE HS PO 250 MG ONCE HS PO BEG 2009 - 3 WKS BEG 2010 JAN TO FEB
     Route: 048
     Dates: start: 20100101, end: 20100201
  2. VALPROIC ACID [Suspect]
     Indication: BIPOLAR II DISORDER
     Dosage: 500 MG TWICE HS PO 250 MG ONCE HS PO BEG 2009 - 3 WKS BEG 2010 JAN TO FEB
     Route: 048
     Dates: start: 20090101

REACTIONS (3)
  - DYSKINESIA [None]
  - PRODUCT SUBSTITUTION ISSUE [None]
  - SUICIDAL IDEATION [None]
